FAERS Safety Report 10457394 (Version 3)
Quarter: 2015Q1

REPORT INFORMATION
  Report Type: Spontaneous
  Country: US (occurrence: US)
  Receive Date: 20140916
  Receipt Date: 20150327
  Transmission Date: 20150720
  Serious: Yes (Hospitalization, Other)
  Sender: FDA-Public Use
  Company Number: US-PFIZER INC-2014254509

PATIENT
  Age: 89 Year
  Sex: Female

DRUGS (1)
  1. DISOPYRAMIDE PHOSPHATE. [Suspect]
     Active Substance: DISOPYRAMIDE PHOSPHATE
     Dosage: 150 MG, 4X/DAY

REACTIONS (4)
  - Condition aggravated [Unknown]
  - Urinary retention [Unknown]
  - Dyspnoea [Recovered/Resolved]
  - Sensation of foreign body [Unknown]
